FAERS Safety Report 7819980-7 (Version None)
Quarter: 2011Q4

REPORT INFORMATION
  Report Type: 
  Country: None (occurrence: None)
  Receive Date: 20111018
  Receipt Date: 20111012
  Transmission Date: 20120403
  Serious: Yes (Hospitalization, Other)
  Sender: FDA-Public Use
  Company Number: AU-B.I. PHARMACEUTICALS,INC./RIDGEFIELD-2011-AU-01164AU

PATIENT
  Sex: Female
  Weight: 60 kg

DRUGS (20)
  1. PRADAXA [Suspect]
     Indication: CEREBROVASCULAR ACCIDENT PROPHYLAXIS
     Dosage: 220 MG
     Dates: start: 20110701, end: 20110816
  2. PRADAXA [Suspect]
     Indication: PULMONARY EMBOLISM
  3. ATROVENT [Concomitant]
  4. NILSTAT [Concomitant]
  5. POLY-TEARS [Concomitant]
  6. PREDNISOLONE [Concomitant]
  7. PANTOPRAZOLE [Concomitant]
  8. ORDINE [Concomitant]
     Route: 048
  9. VENTOLIN [Concomitant]
  10. ASMOL [Concomitant]
     Route: 055
  11. FUROSEMIDE [Concomitant]
     Dosage: 40 MG
     Route: 048
  12. GASTRO GEL [Concomitant]
     Route: 048
  13. NITROLINGUAL [Concomitant]
  14. RAMIPRIL [Concomitant]
  15. ACETAMINOPHEN W/ CODEINE [Concomitant]
     Dosage: 500/30 MG
     Route: 048
  16. VITAMIN D [Concomitant]
  17. COLOXYL WITH SENNA [Concomitant]
     Dosage: 50/8 MG
  18. MS CONTIN [Concomitant]
     Dosage: 10 MG
  19. PRADAXA [Suspect]
     Indication: ATRIAL FIBRILLATION
  20. ACETAMINOPHEN [Concomitant]
     Route: 048

REACTIONS (10)
  - RENAL FAILURE ACUTE [None]
  - PULMONARY OEDEMA [None]
  - ASTHENIA [None]
  - PANCREATITIS ACUTE [None]
  - ATRIAL FIBRILLATION [None]
  - URINARY TRACT INFECTION [None]
  - ANAEMIA [None]
  - MOUTH ULCERATION [None]
  - RENAL FAILURE [None]
  - DIARRHOEA [None]
